FAERS Safety Report 13738518 (Version 1)
Quarter: 2017Q3

REPORT INFORMATION
  Report Type: Report from Study
  Country: US (occurrence: US)
  Receive Date: 20170710
  Receipt Date: 20170710
  Transmission Date: 20171127
  Serious: No
  Sender: FDA-Public Use
  Company Number: US-SAOL THERAPEUTICS-2016SAO00670

PATIENT
  Age: 56 Year
  Sex: Female

DRUGS (4)
  1. COMPOUNDED BACLOFEN [Suspect]
     Active Substance: BACLOFEN
     Indication: PAIN
     Dosage: 219.1 ?G, \DAY
     Route: 037
     Dates: start: 20150819
  2. MORPHINE [Suspect]
     Active Substance: MORPHINE
     Dosage: 0.599 MG, \DAY
     Route: 037
     Dates: start: 20150819
  3. COMPOUNDED BACLOFEN [Suspect]
     Active Substance: BACLOFEN
     Indication: LUMBAR RADICULOPATHY
     Dosage: 120 ?G, \DAY
     Route: 037
     Dates: start: 20150819
  4. MORPHINE [Suspect]
     Active Substance: MORPHINE
     Dosage: 1.0957 MG, \DAY
     Route: 037
     Dates: start: 20150819

REACTIONS (4)
  - Implant site swelling [Recovered/Resolved]
  - Implant site pain [Recovered/Resolved]
  - Implant site irritation [Unknown]
  - Off label use [Unknown]

NARRATIVE: CASE EVENT DATE: 20160317
